FAERS Safety Report 9684095 (Version 1)
Quarter: 2013Q4

REPORT INFORMATION
  Report Type: Spontaneous
  Country: DE (occurrence: DE)
  Receive Date: 20131112
  Receipt Date: 20131112
  Transmission Date: 20140711
  Serious: Yes (Hospitalization, Other)
  Sender: FDA-Public Use
  Company Number: DE-UCBSA-102796

PATIENT
  Sex: Male

DRUGS (1)
  1. CIMZIA [Suspect]
     Dosage: DOSE: 200 (UNITS UNSPECIFIED), EVERY 2 WEEKS, ON HOLD
     Dates: end: 2013

REACTIONS (4)
  - Metastases to lymph nodes [Unknown]
  - Malignant neoplasm of unknown primary site [Unknown]
  - Squamous cell carcinoma [Unknown]
  - Neoplasm malignant [Unknown]
